FAERS Safety Report 8312910-3 (Version None)
Quarter: 2012Q2

REPORT INFORMATION
  Report Type: 
  Country: None (occurrence: None)
  Receive Date: 20120424
  Receipt Date: 20120416
  Transmission Date: 20120825
  Serious: Yes (Hospitalization)
  Sender: FDA-Public Use
  Company Number: US-008218

PATIENT
  Age: 36 Year
  Sex: Female
  Weight: 152.8622 kg

DRUGS (1)
  1. TRANEXAMIC ACID [Suspect]
     Indication: MENORRHAGIA
     Dosage: (1300 MG TID)
     Dates: start: 20120405, end: 20120408

REACTIONS (3)
  - SWELLING FACE [None]
  - DEEP VEIN THROMBOSIS [None]
  - PULMONARY EMBOLISM [None]
